FAERS Safety Report 9373323 (Version 4)
Quarter: 2013Q3

REPORT INFORMATION
  Report Type: Report from Study
  Country: AU (occurrence: AU)
  Receive Date: 20130627
  Receipt Date: 20130826
  Transmission Date: 20140515
  Serious: Yes (Hospitalization)
  Sender: FDA-Public Use
  Company Number: AU-GLAXOSMITHKLINE-B0893995B

PATIENT
  Age: 69 Year
  Sex: Male

DRUGS (17)
  1. PAZOPANIB [Suspect]
     Indication: METASTATIC RENAL CELL CARCINOMA
     Route: 048
     Dates: start: 20130225, end: 20130612
  2. CYMBALTA [Concomitant]
     Indication: PAIN
     Dosage: 60MG PER DAY
     Route: 048
     Dates: start: 20120807
  3. ENDONE [Concomitant]
     Indication: PAIN
     Dosage: 5MG PER DAY
     Route: 048
     Dates: start: 20120412
  4. GENTEAL [Concomitant]
     Indication: EYE IRRITATION
     Route: 061
     Dates: start: 20120207
  5. GENTEAL [Concomitant]
     Indication: EYE IRRITATION
     Route: 061
     Dates: start: 20120207
  6. GENTEAL [Concomitant]
     Indication: EYE IRRITATION
     Dosage: 1MG PER DAY
     Route: 061
     Dates: start: 20120207
  7. NORSPAN [Concomitant]
     Indication: PAIN
     Dosage: 20MG WEEKLY
     Route: 061
     Dates: start: 20100208, end: 20130226
  8. PANADOL OSTEO [Concomitant]
     Indication: ARTHRALGIA
     Dosage: 1330MG THREE TIMES PER DAY
     Route: 048
     Dates: start: 20050524
  9. FENTANYL PATCH [Concomitant]
     Indication: NECK PAIN
     Dosage: 12.5MG TWO TIMES PER WEEK
     Route: 061
     Dates: start: 20130226, end: 20130325
  10. NORSPAN [Concomitant]
     Indication: PAIN
     Dosage: 20MG PER DAY
     Route: 062
     Dates: start: 20130326
  11. CARDIZEM [Concomitant]
     Indication: HYPERTENSION
     Dosage: 180MG PER DAY
     Route: 048
     Dates: start: 20130411
  12. PERINDOPRIL [Concomitant]
     Indication: HYPERTENSION
     Dosage: 10MG PER DAY
     Route: 048
     Dates: start: 20130411
  13. THYROXINE [Concomitant]
     Indication: HYPOTHYROIDISM
     Dosage: 50MG PER DAY
     Route: 048
     Dates: start: 20130423
  14. ASPIRIN [Concomitant]
     Indication: PROPHYLAXIS
     Dosage: 100MG PER DAY
     Route: 048
     Dates: start: 20130508, end: 20130521
  15. ASASANTIN [Concomitant]
     Indication: PROPHYLAXIS
     Dosage: 1MG PER DAY
     Route: 048
     Dates: start: 20130521
  16. CLEXANE [Concomitant]
     Dosage: 100MG PER DAY
     Route: 058
     Dates: start: 20130524, end: 20130624
  17. LEVETIRACETAM [Concomitant]
     Indication: CONVULSION PROPHYLAXIS
     Dosage: 500MG PER DAY
     Route: 048
     Dates: start: 20130625

REACTIONS (1)
  - Aphasia [Recovering/Resolving]
